FAERS Safety Report 7399067-0 (Version None)
Quarter: 2011Q2

REPORT INFORMATION
  Report Type: 
  Country: None (occurrence: None)
  Receive Date: 20110407
  Receipt Date: 20110326
  Transmission Date: 20111010
  Serious: No
  Sender: FDA-Public Use
  Company Number: US-B.I. PHARMACEUTICALS,INC./RIDGEFIELD-2011-BP-09277BP

PATIENT
  Sex: Male

DRUGS (3)
  1. PRADAXA [Suspect]
     Indication: ATRIAL FIBRILLATION
     Dosage: 300 MG
     Route: 048
     Dates: start: 20110305
  2. DIGOXIN [Suspect]
     Route: 048
     Dates: start: 20110305
  3. COREG [Suspect]
     Indication: HYPERTENSION
     Route: 048
     Dates: start: 20110305

REACTIONS (3)
  - EYE HAEMORRHAGE [None]
  - VITREOUS FLOATERS [None]
  - PHOTOPSIA [None]
